FAERS Safety Report 15306570 (Version 1)
Quarter: 2018Q4

REPORT INFORMATION
  Report Type: Other
  Country: DE (occurrence: DE)
  Receive Date: 20180822
  Receipt Date: 20180822
  Transmission Date: 20190204
  Serious: Yes (Other)
  Sender: FDA-Public Use
  Company Number: DE-APPCO PHARMA LLC-2054064

PATIENT
  Age: 50 Year
  Sex: Female

DRUGS (2)
  1. SILYMARIN [Interacting]
     Active Substance: DIETARY SUPPLEMENT\HERBALS\MILK THISTLE
     Route: 065
  2. CLINDAMYCIN PALMITATE HYDROCHLORIDE. [Suspect]
     Active Substance: CLINDAMYCIN PALMITATE HYDROCHLORIDE
     Route: 065

REACTIONS (2)
  - Drug interaction [Recovering/Resolving]
  - Liver injury [Recovering/Resolving]
